FAERS Safety Report 12803942 (Version 2)
Quarter: 2016Q4

REPORT INFORMATION
  Report Type: Spontaneous
  Country: JP (occurrence: JP)
  Receive Date: 20161003
  Receipt Date: 20161012
  Transmission Date: 20170207
  Serious: Yes (Other)
  Sender: FDA-Public Use
  Company Number: JP-PFIZER INC-2016447488

PATIENT
  Age: 31 Year
  Sex: Male
  Weight: 69 kg

DRUGS (31)
  1. CISPLATIN. [Suspect]
     Active Substance: CISPLATIN
     Dosage: 150 MG/M2, CYCLIC
     Dates: start: 19950821, end: 19950826
  2. CISPLATIN. [Suspect]
     Active Substance: CISPLATIN
     Dosage: 150 MG/M2, CYCLIC
     Dates: start: 19951130, end: 19951204
  3. IFOSFAMIDE. [Suspect]
     Active Substance: IFOSFAMIDE
     Indication: TESTIS CANCER
     Dosage: 10 MG/M2, CYCLIC
     Dates: start: 19951130, end: 19951204
  4. ETOPOSIDE. [Suspect]
     Active Substance: ETOPOSIDE
     Indication: TESTIS CANCER
     Dosage: 750 MG/M2, CYCLIC
     Dates: start: 19950714, end: 19950718
  5. CISPLATIN. [Suspect]
     Active Substance: CISPLATIN
     Dosage: 150 MG/M2, CYCLIC
     Dates: start: 19960109, end: 19960113
  6. CISPLATIN. [Suspect]
     Active Substance: CISPLATIN
     Dosage: 160 MG/M2, CYCLIC
     Dates: start: 19960221, end: 19960224
  7. BLEOMYCIN [Suspect]
     Active Substance: BLEOMYCIN SULFATE
     Dosage: 30 MG/M2, CYCLIC
     Dates: start: 19951020, end: 19951024
  8. ETOPOSIDE. [Suspect]
     Active Substance: ETOPOSIDE
     Dosage: 475 MG/M2, UNK
     Dates: start: 19960523, end: 19960527
  9. IFOSFAMIDE. [Suspect]
     Active Substance: IFOSFAMIDE
     Dosage: 10 MG/M2, CYCLIC
     Dates: start: 19960109, end: 19960113
  10. CISPLATIN. [Suspect]
     Active Substance: CISPLATIN
     Dosage: 150 MG/M2, CYCLIC
     Dates: start: 19950714, end: 19950718
  11. BLEOMYCIN [Suspect]
     Active Substance: BLEOMYCIN SULFATE
     Indication: TESTIS CANCER
     Dosage: 90 MG/M2, CYCLIC
     Dates: start: 19950526, end: 19950609
  12. BLEOMYCIN [Suspect]
     Active Substance: BLEOMYCIN SULFATE
     Dosage: 30 MG/M2, CYCLIC
     Dates: start: 19950714, end: 19950718
  13. ETOPOSIDE. [Suspect]
     Active Substance: ETOPOSIDE
     Dosage: 750 MG/M2, CYCLIC
     Dates: start: 19950919, end: 19950924
  14. ETOPOSIDE. [Suspect]
     Active Substance: ETOPOSIDE
     Dosage: 800 MG/M2, UNK
     Dates: start: 19960221, end: 19960224
  15. BLEOMYCIN [Suspect]
     Active Substance: BLEOMYCIN SULFATE
     Dosage: 30 MG/M2, CYCLIC
     Dates: start: 19950821, end: 19950826
  16. BLEOMYCIN [Suspect]
     Active Substance: BLEOMYCIN SULFATE
     Dosage: 30 MG/M2, CYCLIC
     Dates: start: 19950919, end: 19950924
  17. ETOPOSIDE. [Suspect]
     Active Substance: ETOPOSIDE
     Dosage: 750 MG/M2, CYCLIC
     Dates: start: 19950821, end: 19950826
  18. CISPLATIN. [Suspect]
     Active Substance: CISPLATIN
     Dosage: 150 MG/M2, CYCLIC
     Dates: start: 19951020, end: 19951024
  19. ETOPOSIDE. [Suspect]
     Active Substance: ETOPOSIDE
     Dosage: 475 MG/M2, CYCLIC
     Dates: start: 19951130, end: 19951204
  20. IFOSFAMIDE. [Suspect]
     Active Substance: IFOSFAMIDE
     Dosage: 12.5 MG/M2, CYCLIC
     Dates: start: 19960326, end: 19960330
  21. CISPLATIN. [Suspect]
     Active Substance: CISPLATIN
     Dosage: 15 MG/M2, CYCLIC
     Dates: start: 19950919, end: 19950924
  22. ETOPOSIDE. [Suspect]
     Active Substance: ETOPOSIDE
     Dosage: 475 MG/M2, CYCLIC
     Dates: start: 19960109, end: 19960113
  23. CARBOPLATIN. [Suspect]
     Active Substance: CARBOPLATIN
     Indication: TESTIS CANCER
     Dosage: 1750 MG/M2, CYCLIC
     Dates: start: 19960326, end: 19960330
  24. CISPLATIN. [Suspect]
     Active Substance: CISPLATIN
     Indication: TESTIS CANCER
     Dosage: 150 MG/M2, CYCLIC
     Dates: start: 19950526, end: 19950609
  25. CISPLATIN. [Suspect]
     Active Substance: CISPLATIN
     Dosage: 150 MG/M2, CYCLIC
     Dates: start: 19950616, end: 19950623
  26. CISPLATIN. [Suspect]
     Active Substance: CISPLATIN
     Dosage: 150 MG/M2, CYCLIC
     Dates: start: 19960523, end: 19960527
  27. BLEOMYCIN [Suspect]
     Active Substance: BLEOMYCIN SULFATE
     Dosage: 60 MG/M2, CYCLIC
     Dates: start: 19950616, end: 19950623
  28. ETOPOSIDE. [Suspect]
     Active Substance: ETOPOSIDE
     Dosage: 750 MG/M2, CYCLIC
     Dates: start: 19951020, end: 19951024
  29. ETOPOSIDE. [Suspect]
     Active Substance: ETOPOSIDE
     Dosage: 2000 MG/M2, UNK
     Dates: start: 19960326, end: 19960330
  30. IFOSFAMIDE. [Suspect]
     Active Substance: IFOSFAMIDE
     Dosage: 8 MG/M2, CYCLIC
     Dates: start: 19960221, end: 19960224
  31. IFOSFAMIDE. [Suspect]
     Active Substance: IFOSFAMIDE
     Dosage: 10 MG/M2, CYCLIC
     Dates: start: 19960523, end: 19960527

REACTIONS (2)
  - Acute myeloid leukaemia [Unknown]
  - Second primary malignancy [Unknown]
